FAERS Safety Report 5102756-1 (Version None)
Quarter: 2006Q3

REPORT INFORMATION
  Report Type: 
  Country: None (occurrence: None)
  Receive Date: 20060907
  Receipt Date: 20060825
  Transmission Date: 20061208
  Serious: Yes (Hospitalization, Other)
  Sender: FDA-Public Use
  Company Number: 229194

PATIENT
  Sex: Female

DRUGS (3)
  1. XOLAIR [Suspect]
     Indication: ASTHMA
  2. SINGULAIR [Suspect]
     Indication: ASTHMA
  3. CIPRAMIL (CITALOPRAM) [Concomitant]

REACTIONS (8)
  - BLOOD CALCIUM DECREASED [None]
  - BLOOD PHOSPHORUS DECREASED [None]
  - EPILEPSY [None]
  - LEUKOENCEPHALOPATHY [None]
  - METABOLIC DISORDER [None]
  - NERVOUS SYSTEM DISORDER [None]
  - SPEECH DISORDER [None]
  - TREMOR [None]
